FAERS Safety Report 8975932 (Version 1)
Quarter: 2012Q4

REPORT INFORMATION
  Report Type: 
  Country: US (occurrence: US)
  Receive Date: 20121219
  Receipt Date: 20121219
  Transmission Date: 20130627
  Serious: No
  Sender: FDA-Public Use
  Company Number: US-AMGEN-USASP2012068973

PATIENT
  Age: 88 Year
  Sex: Female

DRUGS (5)
  1. PROLIA [Suspect]
     Indication: OSTEOPOROSIS POSTMENOPAUSAL
     Dosage: UNK
     Dates: start: 201205
  2. VITAMIN D /00107901/ [Concomitant]
  3. BABY ASPIRIN [Concomitant]
  4. DILTIAZEM [Concomitant]
     Dosage: UNK UNK, bid
  5. LISINOPRIL [Concomitant]
     Dosage: UNK UNK, bid

REACTIONS (12)
  - Neck pain [Not Recovered/Not Resolved]
  - Headache [Not Recovered/Not Resolved]
  - Gait disturbance [Not Recovered/Not Resolved]
  - Dizziness [Unknown]
  - Cold sweat [Unknown]
  - Feeling hot [Unknown]
  - Oedema peripheral [Not Recovered/Not Resolved]
  - Activities of daily living impaired [Unknown]
  - Asthenia [Unknown]
  - Feeling abnormal [Unknown]
  - Malaise [Unknown]
  - Pain in extremity [Not Recovered/Not Resolved]
